FAERS Safety Report 24019971 (Version 1)
Quarter: 2024Q2

REPORT INFORMATION
  Report Type: Spontaneous
  Country: US (occurrence: US)
  Receive Date: 20240627
  Receipt Date: 20240627
  Transmission Date: 20240716
  Serious: Yes (Life-Threatening, Hospitalization, Other)
  Sender: FDA-Public Use
  Company Number: None

PATIENT
  Age: 50 Year
  Sex: Male

DRUGS (1)
  1. HEPARIN [Suspect]
     Active Substance: HEPARIN SODIUM
     Indication: Anticoagulant therapy
     Dosage: CONTINUOUS INFUSION

REACTIONS (4)
  - Haematochezia [Unknown]
  - Splenic infarction [Unknown]
  - Deep vein thrombosis [Unknown]
  - Heparin-induced thrombocytopenia [Unknown]
